FAERS Safety Report 14626055 (Version 1)
Quarter: 2018Q1

REPORT INFORMATION
  Report Type: Report from Study
  Country: BR (occurrence: BR)
  Receive Date: 20180312
  Receipt Date: 20180312
  Transmission Date: 20180509
  Serious: Yes (Other)
  Sender: FDA-Public Use
  Company Number: BR-UCBSA-2018009271

PATIENT
  Sex: Female

DRUGS (1)
  1. CERTOLIZUMAB PEGOL [Suspect]
     Active Substance: CERTOLIZUMAB PEGOL
     Indication: RHEUMATOID ARTHRITIS
     Dosage: UNK
     Dates: start: 20171123

REACTIONS (9)
  - Vasculitis [Unknown]
  - Fatigue [Unknown]
  - Peripheral swelling [Unknown]
  - Influenza [Unknown]
  - Urinary tract infection [Unknown]
  - Skin exfoliation [Unknown]
  - Decreased immune responsiveness [Unknown]
  - Pharyngitis [Unknown]
  - Varicose vein [None]
